FAERS Safety Report 5928903-7 (Version None)
Quarter: 2008Q4

REPORT INFORMATION
  Report Type: 
  Country: None (occurrence: None)
  Receive Date: 20081024
  Receipt Date: 20081011
  Transmission Date: 20090506
  Serious: Yes (Hospitalization)
  Sender: FDA-Public Use
  Company Number: PHHO2008PL12180

PATIENT
  Sex: Female
  Weight: 96 kg

DRUGS (8)
  1. PLACEBO OR VALSARTAN [Suspect]
     Indication: CARDIOVASCULAR DISORDER
     Dosage: LEVEL 1
     Dates: start: 20020319
  2. PLACEBO OR VALSARTAN [Suspect]
     Dosage: LEVEL 2
     Route: 048
     Dates: end: 20080930
  3. BLINDED NO TREATMENT RECEIVED NOMED [Suspect]
     Indication: GLUCOSE TOLERANCE IMPAIRED
     Dosage: LEVEL 1
     Dates: start: 20020319
  4. BLINDED PLACEBO PLACEBO [Suspect]
     Indication: GLUCOSE TOLERANCE IMPAIRED
     Dosage: LEVEL 1
     Dates: start: 20020319
  5. STARLIX [Suspect]
     Indication: GLUCOSE TOLERANCE IMPAIRED
     Dosage: LEVEL 1
     Dates: start: 20020319
  6. BLINDED NO TREATMENT RECEIVED NOMED [Suspect]
     Dosage: LEVEL 2
     Route: 048
     Dates: end: 20080930
  7. BLINDED PLACEBO PLACEBO [Suspect]
     Dosage: LEVEL 2
     Route: 048
     Dates: end: 20080930
  8. STARLIX [Suspect]
     Dosage: LEVEL 2
     Route: 048
     Dates: end: 20080930

REACTIONS (5)
  - BLOOD PRESSURE INCREASED [None]
  - CHEST PAIN [None]
  - DISEASE PROGRESSION [None]
  - DRUG INEFFECTIVE [None]
  - HYPERTENSIVE CRISIS [None]
